FAERS Safety Report 23741427 (Version 1)
Quarter: 2024Q2

REPORT INFORMATION
  Report Type: Report from Study
  Country: CO (occurrence: CO)
  Receive Date: 20240415
  Receipt Date: 20240415
  Transmission Date: 20240715
  Serious: Yes (Death, Hospitalization, Other)
  Sender: FDA-Public Use
  Company Number: CO-ASTELLAS-2024US010814

PATIENT
  Age: 59 Year
  Sex: Male

DRUGS (1)
  1. TACROLIMUS [Suspect]
     Active Substance: TACROLIMUS
     Indication: Renal transplant
     Route: 048
     Dates: start: 201912

REACTIONS (4)
  - Hepatic cancer [Fatal]
  - Pancreatic carcinoma [Fatal]
  - Abdominal pain [Fatal]
  - Dysuria [Fatal]

NARRATIVE: CASE EVENT DATE: 20240330
